FAERS Safety Report 9132722 (Version 7)
Quarter: 2014Q2

REPORT INFORMATION
  Report Type: Report from Study
  Country: CA (occurrence: CA)
  Receive Date: 20130301
  Receipt Date: 20140624
  Transmission Date: 20141212
  Serious: Yes (Hospitalization, Other)
  Sender: FDA-Public Use
  Company Number: CA-ROCHE-761792

PATIENT
  Age: 68 Year
  Sex: Female
  Weight: 78 kg

DRUGS (14)
  1. RITUXAN [Suspect]
     Indication: RHEUMATOID ARTHRITIS
     Dosage: FREQUENCY: DAY 1 AND DAY 15, LAST INFUSION ON 21/MAY/2014, 03/JUN/2014
     Route: 042
  2. NEXIUM [Concomitant]
  3. CELEBREX [Concomitant]
  4. GLUCOPHAGE [Concomitant]
  5. CARBOCAL D [Concomitant]
     Dosage: DRUG NAME ^CARBOCAL-D 400^
     Route: 065
  6. FOSAMAX [Concomitant]
  7. HYDRA-ZIDE [Concomitant]
     Dosage: DRUG NAME ^NOVA HYDRAZIDE^
     Route: 065
  8. EUGLUCON [Concomitant]
  9. MORPHINE [Concomitant]
     Dosage: DRUG NAME ^PMS MORPHINE^
     Route: 065
  10. TYLENOL [Concomitant]
  11. ACETAMINOPHEN [Concomitant]
     Indication: PREMEDICATION
     Route: 048
     Dates: start: 20100615, end: 20100615
  12. ACETAMINOPHEN [Concomitant]
     Route: 048
     Dates: start: 20100630, end: 20100630
  13. METHYLPREDNISOLONE [Concomitant]
     Route: 042
     Dates: start: 20100615
  14. PREDNISONE [Concomitant]

REACTIONS (19)
  - Synovitis [Recovered/Resolved]
  - Pyelonephritis [Recovered/Resolved]
  - Vasculitis [Not Recovered/Not Resolved]
  - Fatigue [Not Recovered/Not Resolved]
  - Diarrhoea [Not Recovered/Not Resolved]
  - Dehydration [Recovering/Resolving]
  - Oral fungal infection [Recovering/Resolving]
  - Vomiting [Recovered/Resolved]
  - Nausea [Not Recovered/Not Resolved]
  - Asthenia [Unknown]
  - Rheumatoid arthritis [Unknown]
  - Erythema nodosum [Unknown]
  - Renal disorder [Not Recovered/Not Resolved]
  - Blood urine present [Not Recovered/Not Resolved]
  - Vomiting [Recovering/Resolving]
  - Bacterial test [Unknown]
  - Nausea [Recovering/Resolving]
  - Gastrooesophageal reflux disease [Unknown]
  - Herpes zoster [Unknown]
